FAERS Safety Report 13278741 (Version 3)
Quarter: 2018Q2

REPORT INFORMATION
  Report Type: Report from Study
  Country: DE (occurrence: DE)
  Receive Date: 20170228
  Receipt Date: 20180514
  Transmission Date: 20180711
  Serious: Yes (Hospitalization, Other)
  Sender: FDA-Public Use
  Company Number: DE-BAXALTA-2017BLT001444

PATIENT
  Age: 69 Year
  Sex: Male

DRUGS (2)
  1. FACTOR VIII INHIBITOR BYPASSING FRACTION; BAXJECT II NF [Suspect]
     Active Substance: ANTI-INHIBITOR COAGULANT COMPLEX
     Indication: HAEMORRHAGE
     Dosage: 2X 2000 IU
     Route: 042
     Dates: start: 201701
  2. FACTOR VIII INHIBITOR BYPASSING FRACTION; BAXJECT II NF [Suspect]
     Active Substance: ANTI-INHIBITOR COAGULANT COMPLEX
     Indication: ACQUIRED HAEMOPHILIA WITH ANTI FVIII, XI, OR XIII
     Dosage: UNK (ON DEMAND)
     Route: 042
     Dates: start: 20161111

REACTIONS (1)
  - Anti factor VIII antibody test [Unknown]

NARRATIVE: CASE EVENT DATE: 20170215
